FAERS Safety Report 16004339 (Version 1)
Quarter: 2019Q1

REPORT INFORMATION
  Report Type: Report from Study
  Country: US (occurrence: US)
  Receive Date: 20190226
  Receipt Date: 20190226
  Transmission Date: 20190418
  Serious: Yes (Other)
  Sender: FDA-Public Use
  Company Number: US-BRISTOL-MYERS SQUIBB COMPANY-BMS-2019-018042

PATIENT
  Age: 67 Year
  Sex: Female
  Weight: 90.72 kg

DRUGS (2)
  1. NIVOLUMAB [Suspect]
     Active Substance: NIVOLUMAB
     Indication: UTERINE CANCER
     Dosage: 240 MG, OVER 60 MINUTES ON DAYS 1 AND 15
     Route: 042
     Dates: start: 20181106
  2. CABOZANTINIB [Suspect]
     Active Substance: CABOZANTINIB
     Indication: UTERINE CANCER
     Dosage: 40 MG, QD
     Route: 048
     Dates: start: 20181106

REACTIONS (3)
  - Vulvovaginal inflammation [Not Recovered/Not Resolved]
  - Vulvovaginal pain [Not Recovered/Not Resolved]
  - Perineal pain [Not Recovered/Not Resolved]

NARRATIVE: CASE EVENT DATE: 20181231
